FAERS Safety Report 10144066 (Version 3)
Quarter: 2014Q2

REPORT INFORMATION
  Report Type: Spontaneous
  Country: US (occurrence: US)
  Receive Date: 20140430
  Receipt Date: 20140613
  Transmission Date: 20141212
  Serious: Yes (Other)
  Sender: FDA-Public Use
  Company Number: US-PFIZER INC-2014119089

PATIENT
  Age: 63 Year
  Sex: Female
  Weight: 63.5 kg

DRUGS (3)
  1. PREMARIN [Suspect]
     Indication: MENOPAUSAL SYMPTOMS
     Dosage: 0.625 (NO UNIT PROVIDED), DAILY
     Route: 048
     Dates: start: 1989, end: 1996
  2. ALEVE [Concomitant]
     Indication: HEADACHE
     Dosage: UNK
  3. ALEVE [Concomitant]
     Indication: MUSCLE SPASMS

REACTIONS (1)
  - Deafness [Not Recovered/Not Resolved]
